FAERS Safety Report 10536431 (Version 1)
Quarter: 2014Q4

REPORT INFORMATION
  Report Type: Spontaneous
  Country: US (occurrence: US)
  Receive Date: 20141022
  Receipt Date: 20141022
  Transmission Date: 20150529
  Serious: No
  Sender: FDA-Public Use
  Company Number: US-RECKITT BENCKISER PHARMACEUTICAL, INC-RB-63066-2014

PATIENT

DRUGS (2)
  1. SUBOXONE [Suspect]
     Active Substance: BUPRENORPHINE HYDROCHLORIDE\NALOXONE HYDROCHLORIDE
     Indication: DRUG DEPENDENCE
     Dosage: SUBOXONE FILM; DOSING DETAILS UNKNOWN
     Route: 060
     Dates: start: 20140123
  2. OXYCODONE [Suspect]
     Active Substance: OXYCODONE
     Indication: EUPHORIC MOOD
     Dosage: DOSING DETAILS UNKNOWN; THE PATIENT TOOK TWO OXYCODONES
     Route: 065
     Dates: start: 20140124, end: 20140124

REACTIONS (3)
  - Drug abuse [Recovered/Resolved]
  - No adverse event [Recovered/Resolved]
  - Off label use [Not Recovered/Not Resolved]

NARRATIVE: CASE EVENT DATE: 20140123
